FAERS Safety Report 19920895 (Version 6)
Quarter: 2022Q3

REPORT INFORMATION
  Report Type: Report from Study
  Country: FR (occurrence: FR)
  Receive Date: 20211005
  Receipt Date: 20220912
  Transmission Date: 20221026
  Serious: Yes (Other)
  Sender: FDA-Public Use
  Company Number: FR-PFIZER INC-202101277791

PATIENT
  Sex: Male
  Weight: 105 kg

DRUGS (1)
  1. AVIBACTAM SODIUM\CEFTAZIDIME [Suspect]
     Active Substance: AVIBACTAM SODIUM\CEFTAZIDIME
     Indication: Product used for unknown indication
     Dosage: 2 G, TID
     Dates: start: 20191015, end: 20191022

REACTIONS (6)
  - Gastrointestinal haemorrhage [Recovered/Resolved]
  - Gastrointestinal ischaemia [Recovered/Resolved]
  - Respiratory failure [Recovered/Resolved]
  - Herpes zoster reactivation [Recovered/Resolved]
  - Varicella zoster virus infection [Recovered/Resolved]
  - Gastric mucosal lesion [Recovered/Resolved]

NARRATIVE: CASE EVENT DATE: 20191023
